FAERS Safety Report 8243010-9 (Version None)
Quarter: 2012Q1

REPORT INFORMATION
  Report Type: 
  Country: None (occurrence: None)
  Receive Date: 20120329
  Receipt Date: 20120319
  Transmission Date: 20120608
  Serious: Yes (Hospitalization)
  Sender: FDA-Public Use
  Company Number: IT-JNJFOC-20120309278

PATIENT
  Sex: Male
  Weight: 70 kg

DRUGS (2)
  1. DELORAZEPAM [Concomitant]
     Indication: INSOMNIA
  2. PALIPERIDONE [Suspect]
     Indication: SCHIZOPHRENIA
     Route: 030
     Dates: start: 20111026

REACTIONS (1)
  - DELUSIONAL DISORDER, UNSPECIFIED TYPE [None]
